FAERS Safety Report 23967980 (Version 3)
Quarter: 2024Q3

REPORT INFORMATION
  Report Type: Spontaneous
  Country: DE (occurrence: DE)
  Receive Date: 20240612
  Receipt Date: 20240814
  Transmission Date: 20241017
  Serious: Yes (Life-Threatening, Hospitalization, Other)
  Sender: UCB
  Company Number: DE-UCBSA-2024029165

PATIENT
  Sex: Male
  Weight: 90 kg

DRUGS (2)
  1. CIMZIA [Suspect]
     Active Substance: CERTOLIZUMAB PEGOL
     Indication: Rheumatoid arthritis
     Dosage: 200 MILLIGRAM, WEEKLY (QW) (1X/WEEK OVER THE COURSE OF 4 WEEKS) (LOADING DOSE)
     Route: 058
     Dates: start: 202401, end: 2024
  2. CIMZIA [Suspect]
     Active Substance: CERTOLIZUMAB PEGOL
     Dosage: 200 MILLIGRAM, EV 2 WEEKS(QOW) (1X/EVERY 14 DAYS)
     Route: 058
     Dates: start: 202401, end: 20240322

REACTIONS (12)
  - Meningitis [Recovering/Resolving]
  - Transient ischaemic attack [Recovering/Resolving]
  - Central nervous system vasculitis [Recovering/Resolving]
  - Delirium [Recovering/Resolving]
  - Epilepsy [Recovering/Resolving]
  - Headache [Recovering/Resolving]
  - Disorientation [Recovering/Resolving]
  - Encephalitis [Recovered/Resolved]
  - Cerebral infarction [Recovered/Resolved]
  - Cerebral haemorrhage [Recovered/Resolved]
  - Psychomotor hyperactivity [Unknown]
  - Off label use [Unknown]

NARRATIVE: CASE EVENT DATE: 20240101
